FAERS Safety Report 9503546 (Version 1)
Quarter: 2013Q1

REPORT INFORMATION
  Report Type: Spontaneous
  Country: US (occurrence: None)
  Receive Date: 20130130
  Receipt Date: 20130130
  Transmission Date: 20140127
  Serious: Yes (Hospitalization, Other)
  Sender: FDA-Public Use
  Company Number: US201211009022

PATIENT
  Sex: Female

DRUGS (2)
  1. BYETTA (EXENATIDE) PEN, DISPOSABLE [Suspect]
     Route: 058
  2. VICTOZA (LIRAGLUTIDE) [Concomitant]

REACTIONS (6)
  - Pancreatitis [None]
  - Blood potassium decreased [None]
  - Blood pressure increased [None]
  - Viral infection [None]
  - Abdominal pain [None]
  - Vomiting [None]
